FAERS Safety Report 18190484 (Version 3)
Quarter: 2022Q4

REPORT INFORMATION
  Report Type: Spontaneous
  Country: US (occurrence: US)
  Receive Date: 20200825
  Receipt Date: 20221013
  Transmission Date: 20230112
  Serious: No
  Sender: FDA-Public Use
  Company Number: US-CELLTRION INC.-2020US019375

PATIENT

DRUGS (2)
  1. INFLECTRA [Suspect]
     Active Substance: INFLIXIMAB-DYYB
     Indication: Takayasu^s arteritis
     Dosage: 275 MG, MONTHLY (EVERY 4 WEEKS)
     Route: 065
     Dates: start: 202003
  2. INFLECTRA [Suspect]
     Active Substance: INFLIXIMAB-DYYB
     Dosage: 550 MG, (MONTHLY) EVERY 4 WEEKS
     Route: 065
     Dates: start: 202003

REACTIONS (2)
  - Off label use [Unknown]
  - Off label use [Unknown]
